FAERS Safety Report 25611317 (Version 1)
Quarter: 2025Q3

REPORT INFORMATION
  Report Type: Spontaneous
  Country: US (occurrence: None)
  Receive Date: 20250725
  Receipt Date: 20250725
  Transmission Date: 20251021
  Serious: Yes (Life-Threatening, Hospitalization)
  Sender: FDA-CTU
  Company Number: None

PATIENT
  Age: 23 Year
  Sex: Female
  Weight: 98.8 kg

DRUGS (1)
  1. STELARA [Suspect]
     Active Substance: USTEKINUMAB
     Indication: Colitis ulcerative
     Route: 058
     Dates: start: 20240815, end: 20250605

REACTIONS (7)
  - Hypoaesthesia [None]
  - Muscular weakness [None]
  - Hypokalaemia [None]
  - Urinary tract infection [None]
  - Fungal infection [None]
  - Guillain-Barre syndrome [None]
  - Bacteriuria [None]

NARRATIVE: CASE EVENT DATE: 20250710
